FAERS Safety Report 8050762-X (Version None)
Quarter: 2012Q1

REPORT INFORMATION
  Report Type: 
  Country: None (occurrence: None)
  Receive Date: 20120117
  Receipt Date: 20120117
  Transmission Date: 20120608
  Serious: Yes (Other)
  Sender: FDA-Public Use
  Company Number: None

PATIENT
  Age: 45 Year
  Sex: Female
  Weight: 86.636 kg

DRUGS (1)
  1. CYMBALTA [Suspect]
     Indication: ARTHRALGIA
     Dates: start: 20111108, end: 20120115

REACTIONS (4)
  - DRY MOUTH [None]
  - DRUG EFFECT DECREASED [None]
  - HYPERHIDROSIS [None]
  - AMNESIA [None]
